FAERS Safety Report 5422108-4 (Version None)
Quarter: 2007Q3

REPORT INFORMATION
  Report Type: 
  Country: None (occurrence: None)
  Receive Date: 20070821
  Receipt Date: 20070821
  Transmission Date: 20080115
  Serious: Yes (Hospitalization)
  Sender: FDA-Public Use
  Company Number: None

PATIENT
  Age: 59 Year
  Sex: Male
  Weight: 71.6683 kg

DRUGS (2)
  1. FUROSEMIDE [Suspect]
     Indication: DIURETIC THERAPY
     Dosage: 80MG QD PO
     Route: 048
  2. SPIRONOLACTONE [Suspect]
     Indication: DIURETIC THERAPY
     Dosage: 200MG QD PO
     Route: 048

REACTIONS (6)
  - ASTHENIA [None]
  - AZOTAEMIA [None]
  - DIZZINESS [None]
  - HYPOTENSION [None]
  - POLYURIA [None]
  - WEIGHT DECREASED [None]
